FAERS Safety Report 14372777 (Version 1)
Quarter: 2018Q1

REPORT INFORMATION
  Report Type: Spontaneous
  Country: US (occurrence: US)
  Receive Date: 20180110
  Receipt Date: 20180110
  Transmission Date: 20180509
  Serious: No
  Sender: FDA-Public Use
  Company Number: US-BEH-2018086639

PATIENT
  Sex: Male
  Weight: 45.35 kg

DRUGS (14)
  1. EPINEPHRINE. [Concomitant]
     Active Substance: EPINEPHRINE
     Route: 065
  2. LMX                                /00033401/ [Concomitant]
     Route: 065
  3. VENTOLIN [Concomitant]
     Active Substance: ALBUTEROL SULFATE
     Route: 065
  4. HIZENTRA [Suspect]
     Active Substance: HUMAN IMMUNOGLOBULIN G
     Indication: IMMUNODEFICIENCY COMMON VARIABLE
     Dosage: 5 G, QW
     Route: 058
     Dates: start: 20161014
  5. HIZENTRA [Suspect]
     Active Substance: HUMAN IMMUNOGLOBULIN G
     Indication: IMMUNOLOGY TEST ABNORMAL
     Dosage: UNK
     Route: 058
  6. DIPHENHYDRAMINE. [Concomitant]
     Active Substance: DIPHENHYDRAMINE
     Route: 065
  7. IPRATROPIUM/ALBUTEROL [Concomitant]
     Active Substance: ALBUTEROL\IPRATROPIUM
     Route: 065
  8. SYMBICORT [Concomitant]
     Active Substance: BUDESONIDE\FORMOTEROL FUMARATE DIHYDRATE
     Route: 065
  9. OLOPATADINE. [Concomitant]
     Active Substance: OLOPATADINE
     Route: 065
  10. ACETAMINOPHEN. [Concomitant]
     Active Substance: ACETAMINOPHEN
     Route: 065
  11. MONTELUKAST [Concomitant]
     Active Substance: MONTELUKAST SODIUM
     Route: 065
  12. HIZENTRA [Suspect]
     Active Substance: HUMAN IMMUNOGLOBULIN G
     Indication: INFECTIOUS DISEASE CARRIER
     Dosage: UNK
     Route: 058
  13. ALBUTEROL                          /00139501/ [Concomitant]
     Active Substance: ALBUTEROL
     Route: 065
  14. LEVOCETIRIZINE [Concomitant]
     Active Substance: LEVOCETIRIZINE
     Route: 065

REACTIONS (2)
  - Liver disorder [Unknown]
  - Infection [Unknown]
